FAERS Safety Report 24194172 (Version 2)
Quarter: 2024Q3

REPORT INFORMATION
  Report Type: Report from Study
  Country: US (occurrence: US)
  Receive Date: 20240809
  Receipt Date: 20240815
  Transmission Date: 20241017
  Serious: Yes (Other)
  Sender: MYLAN
  Company Number: US-MYLANLABS-2024M1032283

PATIENT
  Age: 30 Year
  Sex: Female
  Weight: 76.2 kg

DRUGS (2)
  1. GLATIRAMER ACETATE [Suspect]
     Active Substance: GLATIRAMER ACETATE
     Indication: Relapsing-remitting multiple sclerosis
     Dosage: 40 MILLIGRAM, 3XW (THREE TIMES A WEEK)
     Route: 058
  2. GLATIRAMER ACETATE [Suspect]
     Active Substance: GLATIRAMER ACETATE
     Dosage: 40 MILLIGRAM
     Route: 058
     Dates: end: 202407

REACTIONS (14)
  - Altered state of consciousness [Unknown]
  - Visual impairment [Unknown]
  - Lack of injection site rotation [Unknown]
  - Chest discomfort [Unknown]
  - Injection site mass [Unknown]
  - Injection site erythema [Unknown]
  - Injection site induration [Unknown]
  - Injection site swelling [Unknown]
  - Injection site pain [Unknown]
  - Injection site pruritus [Unknown]
  - Chest pain [Unknown]
  - Dyspnoea [Unknown]
  - Flushing [Unknown]
  - Hyperhidrosis [Unknown]

NARRATIVE: CASE EVENT DATE: 20240601
